FAERS Safety Report 11233852 (Version 2)
Quarter: 2015Q3

REPORT INFORMATION
  Report Type: Report from Study
  Country: GB (occurrence: NO)
  Receive Date: 20150702
  Receipt Date: 20150720
  Transmission Date: 20151125
  Serious: Yes (Hospitalization)
  Sender: FDA-Public Use
  Company Number: NO-ACCORD-031695

PATIENT
  Age: 52 Year
  Sex: Female

DRUGS (14)
  1. CIPROXINE [Concomitant]
     Active Substance: CIPROFLOXACIN
     Indication: FEBRILE NEUTROPENIA
     Route: 065
     Dates: start: 20150316, end: 20150319
  2. CYCLOPHOSPHAMIDE/CYCLOPHOSPHAMIDE MONOHYDRATE [Suspect]
     Active Substance: CYCLOPHOSPHAMIDE
     Indication: HER-2 POSITIVE BREAST CANCER
     Route: 065
     Dates: start: 20150305
  3. NEULASTA [Concomitant]
     Active Substance: PEGFILGRASTIM
     Indication: PROPHYLAXIS
     Route: 065
     Dates: start: 20150306, end: 20150309
  4. MEDROL [Concomitant]
     Active Substance: METHYLPREDNISOLONE
     Indication: PROPHYLAXIS
     Route: 065
  5. 5 FLUORO URACIL [Suspect]
     Active Substance: FLUOROURACIL
     Indication: HER-2 POSITIVE BREAST CANCER
     Route: 065
     Dates: start: 20150305
  6. TRASTUZUMAB [Suspect]
     Active Substance: TRASTUZUMAB
     Indication: HER-2 POSITIVE BREAST CANCER
     Dosage: ONCE/SINGLE, 1 DF, TOTAL
     Route: 042
     Dates: start: 20150527
  7. GENTAMICIN. [Concomitant]
     Active Substance: GENTAMICIN
     Indication: FEBRILE NEUTROPENIA
     Route: 065
     Dates: start: 20150311, end: 20150316
  8. SOMAC [Concomitant]
     Active Substance: PANTOPRAZOLE SODIUM
     Indication: NAUSEA
  9. EPIRUBICIN [Suspect]
     Active Substance: EPIRUBICIN
     Indication: HER-2 POSITIVE BREAST CANCER
     Route: 065
     Dates: start: 20150305
  10. LAXOBERAL [Concomitant]
     Active Substance: SODIUM PICOSULFATE
     Indication: CONSTIPATION
     Route: 065
     Dates: start: 20150311
  11. EMEND [Concomitant]
     Active Substance: APREPITANT
     Indication: PROPHYLAXIS
     Route: 065
  12. PERTUZUMAB [Suspect]
     Active Substance: PERTUZUMAB
     Indication: HER-2 POSITIVE BREAST CANCER
     Dosage: ONCE/SINGLE, 1 DF, TOTAL
     Route: 042
     Dates: start: 20150527
  13. ONDANSETRON [Concomitant]
     Active Substance: ONDANSETRON
     Indication: PROPHYLAXIS
     Route: 065
  14. PARACET [Concomitant]
     Active Substance: ACETAMINOPHEN
     Indication: PAIN
     Route: 065
     Dates: start: 20150316

REACTIONS (1)
  - Skin infection [Recovered/Resolved]

NARRATIVE: CASE EVENT DATE: 20150319
